FAERS Safety Report 9561108 (Version 2)
Quarter: 2013Q4

REPORT INFORMATION
  Report Type: Spontaneous
  Country: US (occurrence: US)
  Receive Date: 20130927
  Receipt Date: 20131115
  Transmission Date: 20140711
  Serious: No
  Sender: FDA-Public Use
  Company Number: US-BIOGENIDEC-2013BI056632

PATIENT
  Age: 32 Year
  Sex: Female

DRUGS (8)
  1. TECFIDERA [Suspect]
     Indication: RELAPSING-REMITTING MULTIPLE SCLEROSIS
     Route: 048
     Dates: start: 20130519, end: 20130525
  2. TECFIDERA [Suspect]
     Indication: RELAPSING-REMITTING MULTIPLE SCLEROSIS
     Route: 048
     Dates: start: 20130526
  3. REBIF [Concomitant]
     Indication: MULTIPLE SCLEROSIS
  4. IBUPROFEN [Concomitant]
     Indication: PAIN
  5. TYLENOL [Concomitant]
     Indication: HEADACHE
  6. NEURONTIN [Concomitant]
  7. VITAMIN D [Concomitant]
  8. MICRONOR [Concomitant]

REACTIONS (5)
  - Headache [Not Recovered/Not Resolved]
  - Adverse event [Recovered/Resolved]
  - Dissociation [Recovered/Resolved]
  - Flushing [Recovered/Resolved]
  - Nausea [Recovered/Resolved]
